FAERS Safety Report 8951069 (Version 1)
Quarter: 2012Q4

REPORT INFORMATION
  Report Type: 
  Country: BR (occurrence: BR)
  Receive Date: 20121207
  Receipt Date: 20121207
  Transmission Date: 20130627
  Serious: Yes (Hospitalization, Other)
  Sender: FDA-Public Use
  Company Number: BR-PFIZER INC-2012305976

PATIENT
  Age: 73 Year
  Sex: Female
  Weight: 83 kg

DRUGS (6)
  1. DOSTINEX [Suspect]
     Indication: PROLACTIN HIGH
     Dosage: 0.5 mg, 2x/week
     Route: 048
     Dates: start: 2005, end: 2012
  2. DOSTINEX [Suspect]
     Dosage: 0.5 mg (one tablet), 3x/week
     Route: 048
     Dates: start: 2012, end: 201211
  3. DOSTINEX [Suspect]
     Dosage: 0.5 mg (one tablet), 5x/week
     Route: 048
     Dates: start: 201211
  4. ENALAPRIL MALEATE [Concomitant]
     Indication: BLOOD PRESSURE INCREASED
     Dosage: one tablet or capsule, twice daily
  5. OMEPRAZOLE [Concomitant]
     Indication: PROPHYLAXIS
     Dosage: UNK
  6. TORSILAX [Concomitant]
     Indication: BACK DISORDER
     Dosage: UNK

REACTIONS (4)
  - Brain neoplasm [Unknown]
  - Blood prolactin increased [Not Recovered/Not Resolved]
  - Pruritus generalised [Unknown]
  - Drug ineffective [Not Recovered/Not Resolved]
